FAERS Safety Report 8324951-0 (Version None)
Quarter: 2012Q2

REPORT INFORMATION
  Report Type: 
  Country: None (occurrence: None)
  Receive Date: 20120501
  Receipt Date: 20120429
  Transmission Date: 20120825
  Serious: Yes (Hospitalization, Other)
  Sender: FDA-Public Use
  Company Number: FR-TEVA-329989ISR

PATIENT
  Sex: Female
  Weight: 50 kg

DRUGS (3)
  1. UNSPECIFIED ANTIDEPRESSANTS [Concomitant]
     Indication: DEPRESSION
  2. MODAFANIL [Suspect]
     Indication: HYPERSOMNIA
     Dosage: 400 MILLIGRAM; 4 TABLETS DAILY
     Route: 048
     Dates: start: 20090101
  3. HALDOL [Concomitant]
     Route: 042

REACTIONS (4)
  - TOXICITY TO VARIOUS AGENTS [None]
  - COMA [None]
  - OVERDOSE [None]
  - DRUG DEPENDENCE [None]
